FAERS Safety Report 5800155-8 (Version None)
Quarter: 2008Q3

REPORT INFORMATION
  Report Type: 
  Country: None (occurrence: None)
  Receive Date: 20080702
  Receipt Date: 20080702
  Transmission Date: 20090109
  Serious: Yes (Other)
  Sender: FDA-Public Use
  Company Number: None

PATIENT
  Age: 83 Year
  Sex: Female
  Weight: 61.2356 kg

DRUGS (7)
  1. DIGITEK 0.125 BERTEK [Suspect]
     Indication: HEART RATE INCREASED
     Dosage: 1 QD
     Dates: start: 20080222, end: 20080501
  2. WARFARIN SODIUM [Concomitant]
  3. LIPITOR [Concomitant]
  4. LEVOXYL [Concomitant]
  5. MECLIZINE [Concomitant]
  6. METFORMIN [Concomitant]
  7. TIMOPTIC-XE [Concomitant]

REACTIONS (3)
  - FATIGUE [None]
  - HEART RATE DECREASED [None]
  - HEART RATE INCREASED [None]
